FAERS Safety Report 12784566 (Version 2)
Quarter: 2016Q3

REPORT INFORMATION
  Report Type: Spontaneous
  Country: US (occurrence: US)
  Receive Date: 20160927
  Receipt Date: 20160930
  Transmission Date: 20161109
  Serious: Yes (Hospitalization)
  Sender: FDA-Public Use
  Company Number: US-JNJFOC-20160923836

PATIENT
  Sex: Male
  Weight: 45.36 kg

DRUGS (10)
  1. TRAMADOL. [Concomitant]
     Active Substance: TRAMADOL
     Indication: PAIN
     Dosage: EVERY 6 HOURS AS NEEDED
     Route: 048
  2. CONSTULOSE [Concomitant]
     Active Substance: LACTULOSE
     Indication: GASTRIC DISORDER
     Route: 048
  3. FUROSEMIDE. [Concomitant]
     Active Substance: FUROSEMIDE
     Route: 048
  4. CELECOXIB. [Concomitant]
     Active Substance: CELECOXIB
     Route: 048
  5. ESCITALOPRAM [Concomitant]
     Active Substance: ESCITALOPRAM OXALATE
     Route: 048
  6. PANTOPRAZOLE [Concomitant]
     Active Substance: PANTOPRAZOLE SODIUM
     Dosage: AT 6 P.M.
     Route: 048
  7. LISINOPRIL. [Concomitant]
     Active Substance: LISINOPRIL
     Route: 048
  8. RISPERDAL CONSTA [Suspect]
     Active Substance: RISPERIDONE
     Indication: PRODUCT USED FOR UNKNOWN INDICATION
     Dosage: INITIATED MANY YEARS AGO
     Route: 030
  9. BENZTROPINE [Concomitant]
     Active Substance: BENZTROPINE
     Route: 048
  10. QUETIAPINE. [Concomitant]
     Active Substance: QUETIAPINE
     Dosage: BEDTIME
     Route: 048

REACTIONS (4)
  - Aggression [Not Recovered/Not Resolved]
  - Constipation [Recovered/Resolved]
  - Drug dose omission [Unknown]
  - Abdominal pain upper [Not Recovered/Not Resolved]

NARRATIVE: CASE EVENT DATE: 2016
